FAERS Safety Report 8837077 (Version 1)
Quarter: 2012Q4

REPORT INFORMATION
  Report Type: Spontaneous
  Country: US (occurrence: None)
  Receive Date: 20121011
  Receipt Date: 20121011
  Transmission Date: 20130627
  Serious: No
  Sender: FDA-Public Use
  Company Number: None

PATIENT
  Sex: Male
  Weight: 102.51 kg

DRUGS (1)
  1. JALYN [Suspect]
     Dates: start: 20120926, end: 20121008

REACTIONS (2)
  - Flatulence [None]
  - Diarrhoea [None]
